FAERS Safety Report 5489879-2 (Version None)
Quarter: 2007Q4

REPORT INFORMATION
  Report Type: 
  Country: None (occurrence: None)
  Receive Date: 20071018
  Receipt Date: 20071017
  Transmission Date: 20080405
  Serious: Yes (Hospitalization)
  Sender: FDA-Public Use
  Company Number: US-BRISTOL-MYERS SQUIBB COMPANY-13945449

PATIENT
  Age: 59 Year
  Sex: Male
  Weight: 78 kg

DRUGS (6)
  1. ERBITUX [Suspect]
     Indication: NEOPLASM MALIGNANT
     Dates: start: 20071002, end: 20071009
  2. CISPLATIN [Suspect]
     Indication: NEOPLASM MALIGNANT
     Route: 042
     Dates: start: 20071002, end: 20071002
  3. TAXOL [Suspect]
     Indication: NEOPLASM MALIGNANT
     Route: 042
     Dates: start: 20071002, end: 20071002
  4. DECADRON [Concomitant]
  5. TYLENOL W/ CODEINE NO. 3 [Concomitant]
  6. CIPRO [Concomitant]

REACTIONS (3)
  - DYSPHAGIA [None]
  - MUCOSAL INFLAMMATION [None]
  - PAIN [None]
